FAERS Safety Report 15414495 (Version 1)
Quarter: 2018Q3

REPORT INFORMATION
  Report Type: Spontaneous
  Country: US (occurrence: US)
  Receive Date: 20180921
  Receipt Date: 20180921
  Transmission Date: 20181010
  Serious: No
  Sender: FDA-Public Use
  Company Number: US-NOVOPROD-582216

PATIENT
  Age: 48 Year
  Sex: Male

DRUGS (2)
  1. VICTOZA [Suspect]
     Active Substance: LIRAGLUTIDE
     Indication: DIABETES MELLITUS
     Dosage: 1.2 MG, UNK
     Route: 058
     Dates: start: 201707
  2. LANTUS [Concomitant]
     Active Substance: INSULIN GLARGINE
     Indication: DIABETES MELLITUS
     Dosage: 25 U, UNK
     Route: 058
     Dates: start: 201705

REACTIONS (2)
  - Erectile dysfunction [Not Recovered/Not Resolved]
  - Genital lesion [Recovering/Resolving]

NARRATIVE: CASE EVENT DATE: 201709
